FAERS Safety Report 22057496 (Version 1)
Quarter: 2023Q1

REPORT INFORMATION
  Report Type: Spontaneous
  Country: CO (occurrence: CO)
  Receive Date: 20230303
  Receipt Date: 20230303
  Transmission Date: 20230417
  Serious: Yes (Other)
  Sender: FDA-Public Use
  Company Number: CO-ALKEM LABORATORIES LIMITED-CO-ALKEM-2022-15206

PATIENT
  Age: 32 Year
  Sex: Female

DRUGS (9)
  1. MYCOPHENOLATE MOFETIL [Suspect]
     Active Substance: MYCOPHENOLATE MOFETIL
     Indication: Prophylaxis against transplant rejection
     Dosage: UNK
     Route: 065
  2. TACROLIMUS [Suspect]
     Active Substance: TACROLIMUS
     Indication: Prophylaxis against transplant rejection
     Dosage: UNK
     Route: 065
  3. DEFLAZACORT [Suspect]
     Active Substance: DEFLAZACORT
     Indication: Prophylaxis against transplant rejection
     Dosage: UNK
     Route: 065
  4. RIFAMPIN [Suspect]
     Active Substance: RIFAMPIN
     Indication: Tuberculosis gastrointestinal
     Dosage: UNK
     Route: 065
  5. VALGANCICLOVIR HYDROCHLORIDE [Suspect]
     Active Substance: VALGANCICLOVIR HYDROCHLORIDE
     Indication: Cytomegalovirus infection
     Dosage: UNK
     Route: 065
  6. BASILIXIMAB [Concomitant]
     Active Substance: BASILIXIMAB
     Indication: Product used for unknown indication
     Dosage: UNK
     Route: 065
  7. ETHAMBUTOL [Concomitant]
     Active Substance: ETHAMBUTOL HYDROCHLORIDE
     Indication: Product used for unknown indication
     Dosage: UNK
     Route: 065
  8. IRON [Concomitant]
     Active Substance: IRON
     Indication: Normochromic normocytic anaemia
     Dosage: UNK
     Route: 048
  9. LOPERAMIDE [Concomitant]
     Active Substance: LOPERAMIDE
     Indication: Diarrhoea
     Dosage: UNK
     Route: 065

REACTIONS (4)
  - Cytomegalovirus colitis [Recovering/Resolving]
  - Tuberculosis gastrointestinal [Recovering/Resolving]
  - Drug interaction [Unknown]
  - Off label use [Unknown]
